FAERS Safety Report 8370367-0 (Version None)
Quarter: 2012Q2

REPORT INFORMATION
  Report Type: 
  Country: None (occurrence: None)
  Receive Date: 20120518
  Receipt Date: 20120509
  Transmission Date: 20120825
  Serious: Yes (Life-Threatening, Hospitalization)
  Sender: FDA-Public Use
  Company Number: JP-JNJFOC-20120400652

PATIENT
  Sex: Male
  Weight: 61 kg

DRUGS (9)
  1. ISONIAZID [Concomitant]
     Indication: PROPHYLAXIS
  2. RABEPRAZOLE SODIUM [Concomitant]
     Route: 048
  3. METHOTREXATE [Concomitant]
     Dates: start: 20100630
  4. SIMPONI [Suspect]
     Indication: RHEUMATOID ARTHRITIS
     Route: 058
     Dates: start: 20120302, end: 20120324
  5. BENFOTIAMINE [Concomitant]
     Indication: PROPHYLAXIS
  6. SIMPONI [Suspect]
     Route: 058
     Dates: start: 20120106
  7. INFLIXIMAB [Suspect]
     Indication: RHEUMATOID ARTHRITIS
     Route: 042
     Dates: start: 20100709, end: 20111111
  8. SIMPONI [Suspect]
     Route: 058
     Dates: start: 20120204
  9. FOLIC ACID [Concomitant]
     Indication: PROPHYLAXIS

REACTIONS (1)
  - GASTRIC CANCER [None]
